FAERS Safety Report 9475294 (Version 2)
Quarter: 2014Q1

REPORT INFORMATION
  Report Type: Spontaneous
  Country: JP (occurrence: JP)
  Receive Date: 20130826
  Receipt Date: 20140223
  Transmission Date: 20141002
  Serious: Yes (Hospitalization, Other)
  Sender: FDA-Public Use
  Company Number: JP-009507513-1308JPN007822

PATIENT
  Age: 72 Year
  Sex: Male

DRUGS (3)
  1. ZETIA TABLETS 10MG [Suspect]
     Indication: HYPERCHOLESTEROLAEMIA
     Dosage: 10 MG, QW
     Route: 048
     Dates: start: 20130709, end: 20130729
  2. NEXIUM [Suspect]
     Dosage: UNK
     Dates: start: 20130709
  3. MAINTATE [Suspect]
     Dosage: UNK
     Dates: start: 20130709

REACTIONS (1)
  - Stevens-Johnson syndrome [Unknown]
